FAERS Safety Report 9435534 (Version 2)
Quarter: 2013Q3

REPORT INFORMATION
  Report Type: Spontaneous
  Country: US (occurrence: US)
  Receive Date: 20130801
  Receipt Date: 20130820
  Transmission Date: 20140515
  Serious: Yes (Death, Hospitalization, Disabling)
  Sender: FDA-Public Use
  Company Number: US-CELGENEUS-163-21880-13014203

PATIENT
  Age: 91 Year
  Sex: Female

DRUGS (1)
  1. REVLIMID [Suspect]
     Indication: PLASMA CELL MYELOMA
     Dosage: 5 MILLIGRAM
     Route: 048
     Dates: start: 20120815, end: 201212

REACTIONS (3)
  - Plasma cell myeloma [Fatal]
  - Anaemia [Not Recovered/Not Resolved]
  - Fatigue [Not Recovered/Not Resolved]
